FAERS Safety Report 7604045-X (Version None)
Quarter: 2011Q3

REPORT INFORMATION
  Report Type: 
  Country: None (occurrence: None)
  Receive Date: 20110712
  Receipt Date: 20110627
  Transmission Date: 20111222
  Serious: Yes (Hospitalization)
  Sender: FDA-Public Use
  Company Number: IN-WATSON-2011-10096

PATIENT
  Age: 25 Year
  Sex: Female

DRUGS (4)
  1. SERTRALINE HYDROCHLORIDE [Suspect]
     Indication: DEPRESSION
     Dosage: 50 MG, UNK
     Route: 048
  2. VERAPAMIL HCL [Suspect]
     Indication: SUICIDE ATTEMPT
     Dosage: 40 MG, UNK
     Route: 048
  3. METOPROLOL TARTRATE [Suspect]
     Indication: SUICIDE ATTEMPT
     Dosage: 50 MG, UNK
     Route: 048
  4. CLONAZEPAM [Suspect]
     Indication: DEPRESSION
     Dosage: 1 MG, UNK
     Route: 048

REACTIONS (3)
  - OPTIC ISCHAEMIC NEUROPATHY [None]
  - ATRIOVENTRICULAR BLOCK FIRST DEGREE [None]
  - SUICIDE ATTEMPT [None]
